FAERS Safety Report 23084586 (Version 1)
Quarter: 2023Q4

REPORT INFORMATION
  Report Type: Spontaneous
  Country: US (occurrence: None)
  Receive Date: 20231018
  Receipt Date: 20231018
  Transmission Date: 20240110
  Serious: Yes (Other)
  Sender: FDA-Public Use
  Company Number: None

PATIENT
  Age: 76 Year
  Sex: Female
  Weight: 62.6 kg

DRUGS (12)
  1. ALENDRONATE [Suspect]
     Active Substance: ALENDRONATE SODIUM
     Indication: Osteoporosis
     Dosage: FREQUENCY : WEEKLY;?
     Route: 048
     Dates: start: 20230922, end: 20230929
  2. METOPROLOL [Concomitant]
     Active Substance: METOPROLOL
  3. BENAZEPRIL [Concomitant]
     Active Substance: BENAZEPRIL HYDROCHLORIDE
  4. CLONIDINE [Concomitant]
     Active Substance: CLONIDINE
  5. FENOFIBRATE [Concomitant]
     Active Substance: FENOFIBRATE
  6. AMLODIPINE [Concomitant]
     Active Substance: AMLODIPINE BESYLATE
  7. MELATONIN [Concomitant]
     Active Substance: MELATONIN
  8. Low dose aspirin (81mg) [Concomitant]
  9. VITAMIN D3 [Concomitant]
     Active Substance: CHOLECALCIFEROL
  10. FISH OIL\OMEGA-3 FATTY ACIDS [Concomitant]
     Active Substance: FISH OIL\OMEGA-3 FATTY ACIDS
  11. HERBALS\TURMERIC [Concomitant]
     Active Substance: HERBALS\TURMERIC
  12. A vision suppliment with lutein [Concomitant]

REACTIONS (9)
  - Diarrhoea [None]
  - Headache [None]
  - Pyrexia [None]
  - Nausea [None]
  - Chills [None]
  - Vomiting [None]
  - Decreased appetite [None]
  - Abdominal distension [None]
  - Asthenia [None]

NARRATIVE: CASE EVENT DATE: 20230929
